FAERS Safety Report 4821873-4 (Version None)
Quarter: 2005Q4

REPORT INFORMATION
  Report Type: 
  Country: None (occurrence: None)
  Receive Date: 20051103
  Receipt Date: 20051021
  Transmission Date: 20060501
  Serious: Yes (Hospitalization)
  Sender: FDA-Public Use
  Company Number: 2005145174

PATIENT
  Age: 36 Year
  Sex: Female

DRUGS (1)
  1. DIFLUCAN [Suspect]
     Indication: VULVOVAGINAL MYCOTIC INFECTION
     Dosage: 150 MG (150 MG), ORAL
     Route: 048
     Dates: start: 20040308, end: 20040308

REACTIONS (5)
  - ABORTION SPONTANEOUS [None]
  - DRUG EXPOSURE DURING PREGNANCY [None]
  - PREMATURE RUPTURE OF MEMBRANES [None]
  - UTERINE CONTRACTIONS ABNORMAL [None]
  - VAGINAL HAEMORRHAGE [None]
